FAERS Safety Report 6431385-2 (Version None)
Quarter: 2009Q4

REPORT INFORMATION
  Report Type: 
  Country: None (occurrence: None)
  Receive Date: 20091106
  Receipt Date: 20091026
  Transmission Date: 20100525
  Serious: Yes (Other)
  Sender: FDA-Public Use
  Company Number: PHEH2009US14525

PATIENT
  Sex: Female

DRUGS (3)
  1. RECLAST [Suspect]
     Dosage: UNK, UNK
     Dates: start: 20080101, end: 20080101
  2. RECLAST [Suspect]
     Dosage: UNK, UNK
     Dates: start: 20090101
  3. SYNTHROID [Concomitant]
     Dosage: UNK, UNK

REACTIONS (1)
  - HERPES ZOSTER [None]
